FAERS Safety Report 9185643 (Version 1)
Quarter: 2013Q1

REPORT INFORMATION
  Report Type: Spontaneous
  Country: IT (occurrence: None)
  Receive Date: 20130321
  Receipt Date: 20130321
  Transmission Date: 20140127
  Serious: Yes (Hospitalization)
  Sender: FDA-Public Use
  Company Number: 2013-04820

PATIENT
  Age: 4 Year
  Sex: Female

DRUGS (1)
  1. PARACETAMOL (PARACETAMOL) [Suspect]
     Indication: PYREXIA
     Dosage: SINGLE
     Route: 054
     Dates: start: 20130126, end: 20130126

REACTIONS (2)
  - Lip swelling [None]
  - Eye swelling [None]
